FAERS Safety Report 4505581-5 (Version None)
Quarter: 2004Q4

REPORT INFORMATION
  Report Type: 
  Country: None (occurrence: None)
  Receive Date: 20041018
  Receipt Date: 20040719
  Transmission Date: 20050328
  Serious: No
  Sender: FDA-Public Use
  Company Number: 207964

PATIENT
  Age: 16 Year
  Sex: Female

DRUGS (8)
  1. XOLAIR [Suspect]
     Indication: ASTHMA
     Dosage: 375 MG Q2W, SUBCUTANEOUS
     Route: 058
     Dates: start: 20040715
  2. EFFEXOR [Concomitant]
  3. ALBUTEROL INHALER (ALBUTEROL, ALBUTEROL SULFATE) [Concomitant]
  4. SINGULAIR [Concomitant]
  5. FORADIL [Concomitant]
  6. PULMICORT [Concomitant]
  7. RHINOCORT [Concomitant]
  8. PREDNISONE [Concomitant]

REACTIONS (2)
  - ARTHRALGIA [None]
  - LETHARGY [None]
